FAERS Safety Report 5238074-0 (Version None)
Quarter: 2007Q1

REPORT INFORMATION
  Report Type: 
  Country: None (occurrence: None)
  Receive Date: 20070209
  Receipt Date: 20070209
  Transmission Date: 20070707
  Serious: Yes (Life-Threatening, Hospitalization)
  Sender: FDA-Public Use
  Company Number: None

PATIENT
  Age: 63 Year
  Sex: Male
  Weight: 84.369 kg

DRUGS (1)
  1. GADOLINIUM [Suspect]
     Indication: CEREBROVASCULAR ACCIDENT
     Dates: start: 20060119, end: 20060119

REACTIONS (4)
  - HAND DEFORMITY [None]
  - LIMB DISCOMFORT [None]
  - LUNG DISORDER [None]
  - MALAISE [None]
